FAERS Safety Report 23980863 (Version 1)
Quarter: 2024Q2

REPORT INFORMATION
  Report Type: Report from Study
  Country: US (occurrence: US)
  Receive Date: 20240617
  Receipt Date: 20240617
  Transmission Date: 20240716
  Serious: Yes (Hospitalization, Other)
  Sender: FDA-Public Use
  Company Number: US-GILEAD-2022-0586894

PATIENT
  Sex: Male

DRUGS (2)
  1. AZTREONAM LYSINE [Suspect]
     Active Substance: AZTREONAM LYSINE
     Indication: Cystic fibrosis
     Dosage: 75 MG, TID, EVERY MONTH
     Route: 055
     Dates: start: 20160216
  2. AZTREONAM LYSINE [Suspect]
     Active Substance: AZTREONAM LYSINE
     Dosage: 1 DOSAGE FORM, TID
     Route: 055
     Dates: start: 20160405

REACTIONS (4)
  - Bacterial infection [Unknown]
  - Deafness [Unknown]
  - Weight increased [Unknown]
  - Off label use [Recovered/Resolved]
